FAERS Safety Report 9055656 (Version 1)
Quarter: 2013Q1

REPORT INFORMATION
  Report Type: Spontaneous
  Country: FR (occurrence: FR)
  Receive Date: 20130206
  Receipt Date: 20130206
  Transmission Date: 20140127
  Serious: Yes (Other)
  Sender: FDA-Public Use
  Company Number: FR-PFIZER INC-2013043663

PATIENT
  Age: 51 Year
  Sex: Male

DRUGS (1)
  1. CELEBREX [Suspect]
     Dosage: 10 MG, SINGLE
     Route: 048
     Dates: start: 20121105

REACTIONS (2)
  - Lip oedema [Recovered/Resolved]
  - Throat irritation [Recovered/Resolved]
